FAERS Safety Report 19923236 (Version 1)
Quarter: 2021Q4

REPORT INFORMATION
  Report Type: Spontaneous
  Country: JP (occurrence: JP)
  Receive Date: 20211005
  Receipt Date: 20211005
  Transmission Date: 20220303
  Serious: Yes (Death, Other)
  Sender: FDA-Public Use
  Company Number: JP-JAZZ-2021-JP-003677

PATIENT
  Age: 44 Year
  Sex: Male
  Weight: 99.4 kg

DRUGS (1)
  1. DEFITELIO [Suspect]
     Active Substance: DEFIBROTIDE SODIUM
     Indication: Venoocclusive liver disease
     Dosage: 25 MG/KG/DAY
     Route: 042
     Dates: start: 20201030, end: 20201125

REACTIONS (4)
  - Acute myeloid leukaemia [Fatal]
  - Lower gastrointestinal haemorrhage [Recovering/Resolving]
  - Haematuria [Recovering/Resolving]
  - Off label use [Unknown]

NARRATIVE: CASE EVENT DATE: 20201030
